FAERS Safety Report 7425793-0 (Version None)
Quarter: 2011Q2

REPORT INFORMATION
  Report Type: 
  Country: None (occurrence: None)
  Receive Date: 20110420
  Receipt Date: 20110407
  Transmission Date: 20111010
  Serious: Yes (Hospitalization)
  Sender: FDA-Public Use
  Company Number: DE-JNJFOC-20110407818

PATIENT
  Sex: Male
  Weight: 73 kg

DRUGS (16)
  1. PALEXIA RETARD [Suspect]
     Route: 048
  2. PALEXIA RETARD [Suspect]
     Indication: BACK PAIN
     Route: 048
  3. CELEBREX [Concomitant]
     Route: 065
  4. PALEXIA RETARD [Suspect]
     Route: 048
  5. TARGIN [Concomitant]
  6. RANTUDIL [Concomitant]
  7. PALEXIA RETARD [Suspect]
     Indication: PAIN
     Route: 048
  8. PALEXIA RETARD [Suspect]
     Indication: ARTHRALGIA
     Route: 048
  9. MACROGOL [Concomitant]
  10. PALEXIA RETARD [Suspect]
     Route: 048
  11. PALEXIA RETARD [Suspect]
     Route: 048
  12. PALEXIA RETARD [Suspect]
     Route: 048
  13. PALEXIA RETARD [Suspect]
     Route: 048
  14. PREGABALIN [Concomitant]
     Route: 065
  15. METAMIZOL [Concomitant]
     Route: 065
  16. NOVAMINSULFON [Concomitant]
     Route: 065

REACTIONS (5)
  - PANIC DISORDER [None]
  - ABDOMINAL PAIN [None]
  - COLITIS [None]
  - ANXIETY [None]
  - CONSTIPATION [None]
